FAERS Safety Report 21333365 (Version 3)
Quarter: 2023Q1

REPORT INFORMATION
  Report Type: Spontaneous
  Country: US (occurrence: US)
  Receive Date: 20220914
  Receipt Date: 20230309
  Transmission Date: 20230418
  Serious: Yes (Death)
  Sender: FDA-Public Use
  Company Number: US-Ipsen Biopharmaceuticals, Inc.-2022-25716

PATIENT
  Age: 65 Year
  Sex: Male
  Weight: 80 kg

DRUGS (2)
  1. DYSPORT [Suspect]
     Active Substance: ABOBOTULINUMTOXINA
     Indication: Muscle spasticity
     Dosage: 1000 UNITS
     Route: 030
     Dates: start: 20220124, end: 20220124
  2. DYSPORT [Suspect]
     Active Substance: ABOBOTULINUMTOXINA
     Dosage: SITE OF INJECTION WAS SEMITENDINOSUS SEMIMEMBRANOSUS.
     Route: 065
     Dates: start: 20220131, end: 20220131

REACTIONS (1)
  - Death [Fatal]

NARRATIVE: CASE EVENT DATE: 20220904
